FAERS Safety Report 4617815-7 (Version None)
Quarter: 2005Q1

REPORT INFORMATION
  Report Type: 
  Country: None (occurrence: None)
  Receive Date: 20050322
  Receipt Date: 20050310
  Transmission Date: 20050727
  Serious: Yes (Other)
  Sender: FDA-Public Use
  Company Number: 200510266BVD

PATIENT

DRUGS (1)
  1. AVELOX [Suspect]
     Indication: URINARY TRACT INFECTION
     Dosage: 400 MG, TOTAL DAILY, ORAL

REACTIONS (1)
  - ASEPTIC NECROSIS BONE [None]
